FAERS Safety Report 9686990 (Version 1)
Quarter: 2013Q4

REPORT INFORMATION
  Report Type: Spontaneous
  Country: IT (occurrence: IT)
  Receive Date: 20131113
  Receipt Date: 20131113
  Transmission Date: 20140711
  Serious: Yes (Hospitalization)
  Sender: FDA-Public Use
  Company Number: PHHY2013IT127793

PATIENT
  Age: 40 Year
  Sex: Female

DRUGS (5)
  1. VALPROIC ACID [Suspect]
     Dates: start: 20130917, end: 20130917
  2. VENLAFAXINE [Suspect]
     Dates: start: 20130917, end: 20130917
  3. ALPRAZOLAM [Suspect]
     Dates: start: 20130917, end: 20130917
  4. CARBOLITHIUM [Suspect]
     Dates: start: 20130917, end: 20130917
  5. BUPROPION [Suspect]
     Dates: start: 20130917, end: 20130917

REACTIONS (3)
  - Sopor [Recovering/Resolving]
  - Agitation [Recovering/Resolving]
  - Confusional state [Recovering/Resolving]
